FAERS Safety Report 11058914 (Version 1)
Quarter: 2015Q2

REPORT INFORMATION
  Report Type: Spontaneous
  Country: US (occurrence: None)
  Receive Date: 20150416
  Receipt Date: 20150416
  Transmission Date: 20150821
  Serious: Yes (Other)
  Sender: FDA-Public Use
  Company Number: AUR-APL-2014-06103

PATIENT
  Age: 63 Year
  Sex: Female
  Weight: 86.2 kg

DRUGS (3)
  1. TRIAMTERENE AND HYDROCHLOROTHIZIDE (HYDROCHLOROTHIAZIDE, TRIAMTERENE) [Concomitant]
  2. LISINOPRIL (LISINOPRIL) UNKNOWN, UNKNOWN [Suspect]
     Active Substance: LISINOPRIL
     Indication: HYPERTENSION
  3. LEVOTHYROXINE [Concomitant]
     Active Substance: LEVOTHYROXINE

REACTIONS (1)
  - Weight decreased [None]
